FAERS Safety Report 10395817 (Version 1)
Quarter: 2014Q1

REPORT INFORMATION
  Report Type: Spontaneous
  Country: US (occurrence: None)
  Receive Date: 20130724
  Receipt Date: 20130724
  Transmission Date: 20141002
  Serious: Yes (Other)
  Sender: FDA-Public Use
  Company Number: PHEH2012US009627

PATIENT
  Age: 51 Year
  Sex: Female

DRUGS (11)
  1. GLEEVEC (IMATINIB) UNKNOWN [Suspect]
     Indication: CHRONIC MYELOID LEUKAEMIA
     Route: 048
     Dates: start: 20110715
  2. DILTIAZEM (DILTIAZEM) [Concomitant]
  3. PREDNISONE (PREDNISONE) [Concomitant]
  4. INSULIN (INSULIN) [Concomitant]
  5. CALCIUM (CALCIUM) [Concomitant]
  6. CARBA (CARBAMAZEPINE) [Concomitant]
  7. CARBOHYDRATES (NO INGREDIENTS/SUBSTANCES) [Concomitant]
  8. ASA (ACETYLSALICYLIC ACID) [Concomitant]
  9. RAMIPRIL (RAMIPRIL) [Concomitant]
  10. PROGRAF (TACROLIMUS) [Concomitant]
  11. CELLCEPT (MYCOPHENOLATE MOFETIL) [Concomitant]

REACTIONS (5)
  - Eye haemorrhage [None]
  - Rash erythematous [None]
  - Full blood count decreased [None]
  - Ocular hyperaemia [None]
  - Pruritus [None]
